FAERS Safety Report 25000361 (Version 5)
Quarter: 2025Q3

REPORT INFORMATION
  Report Type: Spontaneous
  Country: US (occurrence: US)
  Receive Date: 20250222
  Receipt Date: 20250903
  Transmission Date: 20251021
  Serious: Yes (Other)
  Sender: SANOFI AVENTIS
  Company Number: US-SA-2025SA051373

PATIENT
  Age: 73 Year
  Sex: Female

DRUGS (3)
  1. DUPIXENT [Suspect]
     Active Substance: DUPILUMAB
     Indication: Asthma
     Route: 058
     Dates: start: 202501, end: 202501
  2. DUPIXENT [Suspect]
     Active Substance: DUPILUMAB
     Dosage: 300 MG, QOW
     Route: 058
     Dates: start: 202501, end: 20250403
  3. DUPIXENT [Suspect]
     Active Substance: DUPILUMAB
     Dosage: 300 MG, QOW
     Route: 058
     Dates: start: 20250420, end: 202506

REACTIONS (11)
  - Pneumonia [Recovered/Resolved]
  - Malaise [Recovering/Resolving]
  - Chills [Recovered/Resolved]
  - Nausea [Unknown]
  - Hypoaesthesia [Unknown]
  - Cough [Unknown]
  - General physical health deterioration [Unknown]
  - Oral candidiasis [Not Recovered/Not Resolved]
  - Illness [Recovered/Resolved]
  - Arthralgia [Unknown]
  - Drug ineffective [Unknown]

NARRATIVE: CASE EVENT DATE: 20250101
